FAERS Safety Report 23148577 (Version 1)
Quarter: 2023Q4

REPORT INFORMATION
  Report Type: Report from Study
  Country: PE (occurrence: PE)
  Receive Date: 20231106
  Receipt Date: 20231106
  Transmission Date: 20240109
  Serious: Yes (Death)
  Sender: FDA-Public Use
  Company Number: PE-AMGEN-PERSL2023192362

PATIENT
  Age: 90 Year
  Sex: Female

DRUGS (1)
  1. ADALIMUMAB [Suspect]
     Active Substance: ADALIMUMAB\ISOPROPYL ALCOHOL
     Indication: Rheumatoid arthritis
     Dosage: 40 MILLIGRAM/0.8 ML, Q2WK (EVERY 15 DAYS)
     Route: 058
     Dates: start: 20230227, end: 20231010

REACTIONS (4)
  - Tracheitis [Fatal]
  - Bronchitis [Fatal]
  - Application site pruritus [Recovered/Resolved]
  - Nasopharyngitis [Unknown]

NARRATIVE: CASE EVENT DATE: 20231001
